FAERS Safety Report 7236684-2 (Version None)
Quarter: 2011Q1

REPORT INFORMATION
  Report Type: 
  Country: None (occurrence: None)
  Receive Date: 20110112
  Receipt Date: 20101230
  Transmission Date: 20110831
  Serious: Yes (Other)
  Sender: FDA-Public Use
  Company Number: 2010TP006

PATIENT
  Sex: Female

DRUGS (1)
  1. HYDROCODONE POLISTIREX AND CHLORPHENIRAMNE POLISTIREX [Suspect]
     Indication: PRODUCT USED FOR UNKNOWN INDICATION

REACTIONS (3)
  - ADVERSE EVENT [None]
  - APPARENT DEATH [None]
  - MALAISE [None]
